FAERS Safety Report 6574230-7 (Version None)
Quarter: 2010Q1

REPORT INFORMATION
  Report Type: 
  Country: None (occurrence: None)
  Receive Date: 20100208
  Receipt Date: 20100128
  Transmission Date: 20100710
  Serious: No
  Sender: FDA-Public Use
  Company Number: US-B.I. PHARMACEUTICALS,INC./RIDGEFIELD-2010-BP-00071BP

PATIENT
  Age: 76 Year
  Sex: Male

DRUGS (15)
  1. CATAPRES-TTS-1 [Suspect]
     Indication: HYPERTENSION
     Dosage: 0.3 MG
     Route: 061
     Dates: start: 20060101
  2. AMARYL [Concomitant]
     Indication: DIABETES MELLITUS
     Dates: start: 20000101
  3. LANTUS [Concomitant]
     Indication: DIABETES MELLITUS
     Dates: start: 20080701
  4. JANUVIA [Concomitant]
     Indication: DIABETES MELLITUS
     Dates: start: 20070609
  5. AVAPRO [Concomitant]
     Indication: HYPERTENSION
     Dates: start: 20000101
  6. TIAZAC [Concomitant]
     Indication: HYPERTENSION
     Dates: start: 20000101
  7. CARDURA [Concomitant]
     Indication: HYPERTENSION
     Dates: start: 20020101
  8. LIPITOR [Concomitant]
     Indication: BLOOD CHOLESTEROL INCREASED
     Dates: start: 20000101
  9. LASIX [Concomitant]
     Indication: DIURETIC THERAPY
     Dates: start: 20020101
  10. ZETIA [Concomitant]
     Indication: BLOOD CHOLESTEROL INCREASED
     Dates: start: 20060101
  11. VITAMIN B-12 [Concomitant]
  12. TANDEM PLUS [Concomitant]
  13. CALCITRIOL [Concomitant]
  14. PROCRIT [Concomitant]
     Indication: ANAEMIA
     Dates: start: 20030507
  15. FLUTICASONE PROPIONATE [Concomitant]
     Indication: ASTHMA

REACTIONS (1)
  - DRUG INEFFECTIVE [None]
